FAERS Safety Report 5281943-6 (Version None)
Quarter: 2007Q1

REPORT INFORMATION
  Report Type: 
  Country: None (occurrence: None)
  Receive Date: 20070330
  Receipt Date: 20070328
  Transmission Date: 20070707
  Serious: Yes (Hospitalization)
  Sender: FDA-Public Use
  Company Number: 2007BH000518

PATIENT
  Age: 54 Year
  Sex: Male

DRUGS (7)
  1. BUMINATE 5% [Suspect]
     Indication: MYASTHENIA GRAVIS
     Dosage: DOSE UNIT:UNKNOWN
     Route: 042
     Dates: start: 20070103, end: 20070103
  2. BUMINATE 5% [Suspect]
     Dosage: DOSE UNIT:UNKNOWN
     Route: 042
     Dates: start: 20070105, end: 20070105
  3. BUMINATE 5% [Suspect]
     Dosage: DOSE UNIT:UNKNOWN
     Route: 042
     Dates: start: 20070108, end: 20070108
  4. LOVASTATIN [Concomitant]
     Indication: HYPERCHOLESTEROLAEMIA
     Route: 048
  5. PREVACID [Concomitant]
     Indication: DRUG USE FOR UNKNOWN INDICATION
     Route: 048
  6. PREDNISONE [Concomitant]
     Indication: MYASTHENIA GRAVIS
     Route: 048
  7. MESTINON [Concomitant]
     Indication: MYASTHENIA GRAVIS

REACTIONS (7)
  - CHILLS [None]
  - DIARRHOEA [None]
  - ELECTROLYTE IMBALANCE [None]
  - HYPOTENSION [None]
  - SEPSIS [None]
  - TACHYCARDIA [None]
  - TREMOR [None]
